FAERS Safety Report 19932281 (Version 10)
Quarter: 2024Q3

REPORT INFORMATION
  Report Type: Report from Study
  Country: US (occurrence: US)
  Receive Date: 20211008
  Receipt Date: 20240927
  Transmission Date: 20241016
  Serious: Yes (Hospitalization, Other)
  Sender: ROCHE
  Company Number: US-ROCHE-2927979

PATIENT

DRUGS (2)
  1. OCRELIZUMAB [Suspect]
     Active Substance: OCRELIZUMAB
     Indication: Multiple sclerosis
     Dosage: CYCLE 1 INCLUDES 2 DOSES OF 300 MG DOSES
     Route: 065
  2. OCRELIZUMAB [Suspect]
     Active Substance: OCRELIZUMAB
     Dosage: CYCLE 2 IS THE FIRST FULL 600 MG DOSE
     Route: 065

REACTIONS (12)
  - Neoplasm malignant [Unknown]
  - Infection [Unknown]
  - Urinary tract infection [Unknown]
  - Infusion related reaction [Unknown]
  - Upper respiratory tract infection [Unknown]
  - Lower respiratory tract infection [Unknown]
  - Herpes zoster [Unknown]
  - Bronchitis [Unknown]
  - Herpes simplex [Unknown]
  - Hypogammaglobulinaemia [Unknown]
  - COVID-19 [Unknown]
  - Blood immunoglobulin G decreased [Unknown]
